FAERS Safety Report 8231038-4 (Version None)
Quarter: 2012Q1

REPORT INFORMATION
  Report Type: 
  Country: None (occurrence: None)
  Receive Date: 20120323
  Receipt Date: 20120315
  Transmission Date: 20120608
  Serious: Yes (Hospitalization)
  Sender: FDA-Public Use
  Company Number: US-BAYER-2011-114454

PATIENT
  Age: 33 Year
  Sex: Female
  Weight: 69.388 kg

DRUGS (2)
  1. YAZ [Suspect]
     Indication: HORMONE THERAPY
  2. YAZ [Suspect]
     Indication: ACNE
     Dosage: UNK
     Dates: start: 20080101

REACTIONS (3)
  - PULMONARY EMBOLISM [None]
  - INJURY [None]
  - PAIN [None]
